FAERS Safety Report 10541201 (Version 2)
Quarter: 2014Q4

REPORT INFORMATION
  Report Type: Spontaneous
  Country: SE (occurrence: SE)
  Receive Date: 20141024
  Receipt Date: 20141024
  Transmission Date: 20150529
  Serious: Yes (Life-Threatening, Hospitalization)
  Sender: FDA-Public Use
  Company Number: SE-ASPEN PHARMA TRADING LIMITED US-AG-2014-006656

PATIENT
  Age: 90 Year
  Sex: Female

DRUGS (12)
  1. TROMBYL 75 MG TABLET [Suspect]
     Active Substance: ASPIRIN
     Indication: MYOCARDIAL INFARCTION
     Route: 048
     Dates: start: 20140806, end: 20140806
  2. LANZO 15MG TABLET [Concomitant]
     Indication: PRODUCT USED FOR UNKNOWN INDICATION
     Route: 065
  3. SAROTEN 25MG FILM-COATED TABLET [Concomitant]
     Indication: PRODUCT USED FOR UNKNOWN INDICATION
     Route: 065
  4. ARIXTRA [Suspect]
     Active Substance: FONDAPARINUX SODIUM
     Indication: MYOCARDIAL INFARCTION
     Dosage: 2.5MG/0.05ML
     Dates: start: 20140806, end: 20140808
  5. TROMBYL 75 MG TABLET [Suspect]
     Active Substance: ASPIRIN
     Route: 048
     Dates: start: 20140807, end: 20140811
  6. SELOKEN 50MG TABLET [Concomitant]
     Indication: PRODUCT USED FOR UNKNOWN INDICATION
     Route: 065
  7. LEVAXIN [Concomitant]
     Active Substance: LEVOTHYROXINE SODIUM
     Indication: PRODUCT USED FOR UNKNOWN INDICATION
     Route: 065
  8. BETOLVEX 1MG FILM-COATED TABLET [Concomitant]
     Indication: PRODUCT USED FOR UNKNOWN INDICATION
     Route: 065
  9. PREDNISOLONE. [Concomitant]
     Active Substance: PREDNISOLONE
     Indication: PRODUCT USED FOR UNKNOWN INDICATION
     Route: 065
  10. CLOPIDOGREL [Suspect]
     Active Substance: CLOPIDOGREL BISULFATE
     Indication: MYOCARDIAL INFARCTION
     Route: 048
     Dates: start: 20140806, end: 20140811
  11. XERODENT 28.6 MG/0.25 MG TABLET [Concomitant]
     Indication: PRODUCT USED FOR UNKNOWN INDICATION
     Dosage: 28.6MG/0.25MG
     Route: 065
  12. PANODIL 500MG TABLET [Concomitant]
     Indication: PAIN
     Route: 065

REACTIONS (4)
  - Cerebral haemorrhage [Not Recovered/Not Resolved]
  - Oesophageal candidiasis [Unknown]
  - Atrial fibrillation [Unknown]
  - Urine abnormality [Unknown]

NARRATIVE: CASE EVENT DATE: 20140811
